FAERS Safety Report 9588093 (Version 1)
Quarter: 2013Q4

REPORT INFORMATION
  Report Type: Spontaneous
  Country: US (occurrence: US)
  Receive Date: 20131003
  Receipt Date: 20131003
  Transmission Date: 20140711
  Serious: No
  Sender: FDA-Public Use
  Company Number: US-AMGEN-USASP2012068550

PATIENT
  Age: 45 Year
  Sex: Female
  Weight: 85.71 kg

DRUGS (6)
  1. ENBREL [Suspect]
     Indication: RHEUMATOID ARTHRITIS
     Dosage: 50 MG, QWK
     Route: 058
  2. CALCIUM D                          /00944201/ [Concomitant]
     Dosage: 600
     Route: 048
  3. FOLIC ACID [Concomitant]
     Dosage: 1 MG, UNK
     Route: 048
  4. METHOTREXATE [Concomitant]
     Dosage: 2.5 MG, UNK
     Route: 048
  5. NOVOLOG MIX [Concomitant]
     Dosage: 70/30
     Route: 058
  6. SIMVASTATIN [Concomitant]
     Dosage: 5 MG, UNK
     Route: 048

REACTIONS (1)
  - Chest pain [Unknown]
